FAERS Safety Report 9341307 (Version 1)
Quarter: 2013Q2

REPORT INFORMATION
  Report Type: Spontaneous
  Country: GB (occurrence: GB)
  Receive Date: 20130611
  Receipt Date: 20130611
  Transmission Date: 20140414
  Serious: Yes (Hospitalization)
  Sender: FDA-Public Use
  Company Number: GB-AMGEN-GBRSP2013040287

PATIENT
  Age: 51 Year
  Sex: Female

DRUGS (1)
  1. DENOSUMAB [Suspect]
     Indication: OSTEOPOROTIC FRACTURE
     Dosage: 60 MG, Q6MO
     Route: 058
     Dates: start: 20130115, end: 20130523

REACTIONS (2)
  - Gastrointestinal haemorrhage [Unknown]
  - Rheumatoid arthritis [Not Recovered/Not Resolved]
